FAERS Safety Report 17123882 (Version 1)
Quarter: 2019Q4

REPORT INFORMATION
  Report Type: Spontaneous
  Country: PL (occurrence: PL)
  Receive Date: 20191206
  Receipt Date: 20191206
  Transmission Date: 20200122
  Serious: Yes (Other)
  Sender: FDA-Public Use
  Company Number: PL-ASTRAZENECA-2019SF71765

PATIENT
  Age: 86 Year
  Sex: Male

DRUGS (2)
  1. CRESTOR [Suspect]
     Active Substance: ROSUVASTATIN CALCIUM
     Dosage: UNKNOWN
     Route: 048
  2. CRESTOR [Suspect]
     Active Substance: ROSUVASTATIN CALCIUM
     Dosage: ROMAZIC
     Route: 048

REACTIONS (14)
  - Flatulence [Unknown]
  - Dizziness [Unknown]
  - Productive cough [Unknown]
  - Arthralgia [Unknown]
  - Dysphagia [Unknown]
  - Headache [Unknown]
  - Eructation [Unknown]
  - Dyspepsia [Unknown]
  - Weight decreased [Unknown]
  - Back pain [Unknown]
  - Abdominal distension [Unknown]
  - Abdominal pain [Unknown]
  - Cough [Unknown]
  - Blood pressure increased [Unknown]
